FAERS Safety Report 15536921 (Version 1)
Quarter: 2018Q4

REPORT INFORMATION
  Report Type: Report from Study
  Country: US (occurrence: US)
  Receive Date: 20181022
  Receipt Date: 20181022
  Transmission Date: 20190205
  Serious: Yes (Hospitalization, Other)
  Sender: FDA-Public Use
  Company Number: US-BAYER-2018-189786

PATIENT
  Age: 53 Year
  Sex: Male

DRUGS (2)
  1. NEXAVAR [Suspect]
     Active Substance: SORAFENIB
     Indication: HEPATOCELLULAR CARCINOMA
     Dosage: 200 MG, BID
     Route: 048
     Dates: start: 20181005, end: 20181012
  2. NEXAVAR [Suspect]
     Active Substance: SORAFENIB
     Indication: HEPATOCELLULAR CARCINOMA
     Dosage: 400 MG, BID
     Route: 048
     Dates: start: 20180930, end: 201810

REACTIONS (15)
  - Arthralgia [None]
  - Joint swelling [None]
  - Headache [None]
  - Flushing [None]
  - Hypophagia [None]
  - Photopsia [None]
  - Diarrhoea [None]
  - Intra-abdominal fluid collection [None]
  - Nausea [None]
  - Blood pressure increased [None]
  - Vomiting [None]
  - Dizziness [None]
  - Off label use [None]
  - Abdominal distension [None]
  - Dehydration [None]

NARRATIVE: CASE EVENT DATE: 2018
